FAERS Safety Report 25724986 (Version 1)
Quarter: 2025Q3

REPORT INFORMATION
  Report Type: Spontaneous
  Country: US (occurrence: US)
  Receive Date: 20250826
  Receipt Date: 20250826
  Transmission Date: 20251020
  Serious: No
  Sender: AMNEAL
  Company Number: US-AMNEAL PHARMACEUTICALS-2025-AMRX-02528

PATIENT
  Age: 65 Year
  Sex: Female
  Weight: 81.633 kg

DRUGS (2)
  1. CREXONT [Suspect]
     Active Substance: CARBIDOPA\LEVODOPA
     Indication: Parkinson^s disease
     Dosage: 02 CAPSULES (52.5/210 MG), 2X/DAY
     Route: 048
     Dates: start: 202503, end: 20250626
  2. SINEMET [Suspect]
     Active Substance: CARBIDOPA\LEVODOPA
     Indication: Parkinson^s disease
     Dosage: 2 TABLETS, 2 /DAY
     Route: 048

REACTIONS (4)
  - Dysarthria [Unknown]
  - Dyskinesia [Not Recovered/Not Resolved]
  - Product use issue [Unknown]
  - Product dose omission issue [Unknown]

NARRATIVE: CASE EVENT DATE: 20250626
